FAERS Safety Report 24705006 (Version 1)
Quarter: 2024Q4

REPORT INFORMATION
  Report Type: Spontaneous
  Country: ES (occurrence: ES)
  Receive Date: 20241206
  Receipt Date: 20241206
  Transmission Date: 20250115
  Serious: Yes (Hospitalization)
  Sender: ROCHE
  Company Number: None

PATIENT
  Age: 85 Year
  Sex: Female
  Weight: 70 kg

DRUGS (3)
  1. PHESGO [Suspect]
     Active Substance: HYALURONIDASE-ZZXF\PERTUZUMAB\TRASTUZUMAB
     Indication: Breast cancer
     Dosage: 1 CICLO+8 600 MILIGRAMOS (600MG/TOTAL) INICIO EL 1 CICLO +1 EL 26/06/2024
     Route: 042
     Dates: start: 20240626, end: 20240703
  2. PACLITAXEL [Suspect]
     Active Substance: PACLITAXEL
     Indication: Breast cancer
     Dosage: 1 CICLO+8  175 MILIGRAMOS (100MG/M2) INICIO EL 1 CICLO +1 EL 26/06/2024
     Route: 042
     Dates: start: 20240626, end: 20240703
  3. CARBOPLATIN [Suspect]
     Active Substance: CARBOPLATIN
     Indication: Breast cancer
     Dosage: 1 CICLO+8 105 MILIGRAMOS (1.66MG/TOTAL) INICIO EL 1 CICLO +1 EL 26/06/2024
     Route: 042
     Dates: start: 20240626, end: 20240703

REACTIONS (4)
  - Diarrhoea [Recovered/Resolved]
  - Acute kidney injury [Recovered/Resolved]
  - Escherichia infection [Recovered/Resolved]
  - Urinary tract infection [Recovered/Resolved]

NARRATIVE: CASE EVENT DATE: 20240706
